FAERS Safety Report 6293806-8 (Version None)
Quarter: 2009Q3

REPORT INFORMATION
  Report Type: 
  Country: None (occurrence: None)
  Receive Date: 20090803
  Receipt Date: 20090723
  Transmission Date: 20100115
  Serious: Yes (Hospitalization)
  Sender: FDA-Public Use
  Company Number: PHEH2009US08113

PATIENT
  Age: 78 Year
  Sex: Female
  Weight: 48.526 kg

DRUGS (1)
  1. RECLAST [Suspect]
     Indication: OSTEOPOROSIS POSTMENOPAUSAL
     Dosage: 5 MG ONCE
     Route: 042
     Dates: start: 20090717, end: 20090717

REACTIONS (4)
  - CHEST DISCOMFORT [None]
  - NAUSEA [None]
  - PYREXIA [None]
  - TREMOR [None]
